FAERS Safety Report 15180819 (Version 1)
Quarter: 2018Q3

REPORT INFORMATION
  Report Type: Spontaneous
  Country: US (occurrence: US)
  Receive Date: 20180623
  Receipt Date: 20180623
  Transmission Date: 20181010
  Serious: Yes (Disabling)
  Sender: FDA-Public Use
  Company Number: None

PATIENT
  Age: 26 Year
  Sex: Female
  Weight: 92.25 kg

DRUGS (2)
  1. PRENATAL VITAMINS [Concomitant]
     Active Substance: VITAMINS
  2. CIPRODEX [Suspect]
     Active Substance: CIPROFLOXACIN HYDROCHLORIDE\DEXAMETHASONE
     Indication: EAR INFECTION
     Route: 001
     Dates: start: 20180622, end: 20180623

REACTIONS (6)
  - Dizziness [None]
  - Deafness [None]
  - Ear swelling [None]
  - Ear pain [None]
  - Crying [None]
  - Ear discomfort [None]

NARRATIVE: CASE EVENT DATE: 20180623
